FAERS Safety Report 23724212 (Version 4)
Quarter: 2025Q1

REPORT INFORMATION
  Report Type: Spontaneous
  Country: BR (occurrence: BR)
  Receive Date: 20240409
  Receipt Date: 20250325
  Transmission Date: 20250408
  Serious: Yes (Death, Hospitalization, Other)
  Sender: BIOMARIN
  Company Number: BR-SA-SAC20240405000953

PATIENT

DRUGS (2)
  1. LARONIDASE [Suspect]
     Active Substance: LARONIDASE
     Indication: Mucopolysaccharidosis I
     Dosage: UNK, QW
     Route: 041
  2. LARONIDASE [Suspect]
     Active Substance: LARONIDASE
     Dosage: 8 DF, QW
     Route: 041
     Dates: start: 20160801, end: 20250203

REACTIONS (9)
  - Respiratory disorder [Fatal]
  - Procedural complication [Fatal]
  - Hydrocephalus [Recovering/Resolving]
  - Intracranial pressure increased [Unknown]
  - Upper airway obstruction [Unknown]
  - Spinal cord compression [Unknown]
  - Musculoskeletal deformity [Unknown]
  - Posture abnormal [Unknown]
  - Tracheostomy [Recovering/Resolving]

NARRATIVE: CASE EVENT DATE: 20250208
